FAERS Safety Report 15685147 (Version 1)
Quarter: 2018Q4

REPORT INFORMATION
  Report Type: Spontaneous
  Country: US (occurrence: US)
  Receive Date: 20181204
  Receipt Date: 20181204
  Transmission Date: 20190205
  Serious: No
  Sender: FDA-Public Use
  Company Number: US-ANTARES PHARMA, INC.-2018-SPO-MX-0424

PATIENT
  Sex: Female

DRUGS (4)
  1. OTREXUP [Suspect]
     Active Substance: METHOTREXATE
     Dosage: 17.5 MG/0.4ML, QWK
     Route: 058
     Dates: start: 20180420
  2. RASUVO [Suspect]
     Active Substance: METHOTREXATE SODIUM
     Dosage: 20 MG/0.4ML, UNK
     Route: 058
     Dates: end: 20160823
  3. METHOTREXATE. [Suspect]
     Active Substance: METHOTREXATE
     Dosage: 250 MG, UNK
     Dates: end: 20180316
  4. OTREXUP [Suspect]
     Active Substance: METHOTREXATE
     Indication: RHEUMATOID ARTHRITIS
     Dosage: 17.5 MG/0.4ML, QWK
     Route: 058

REACTIONS (1)
  - Therapy change [Unknown]
